FAERS Safety Report 11168654 (Version 1)
Quarter: 2015Q2

REPORT INFORMATION
  Report Type: Spontaneous
  Country: PT (occurrence: PT)
  Receive Date: 20150605
  Receipt Date: 20150605
  Transmission Date: 20150821
  Serious: Yes (Hospitalization, Disabling)
  Sender: FDA-Public Use
  Company Number: PT-TEVA-566528ISR

PATIENT
  Age: 35 Year
  Sex: Female
  Weight: 65 kg

DRUGS (3)
  1. FERRUM HAUSMANN [Concomitant]
     Active Substance: FERROUS FUMARATE
     Indication: ANAEMIA
     Route: 048
     Dates: start: 20141001
  2. DAFLON 500 [Concomitant]
     Indication: PERIPHERAL VENOUS DISEASE
     Route: 048
     Dates: start: 2000
  3. MEPHAQUIN LACTAB [Suspect]
     Active Substance: MEFLOQUINE HYDROCHLORIDE
     Indication: MALARIA PROPHYLAXIS
     Route: 048
     Dates: start: 20141012, end: 20141028

REACTIONS (6)
  - Confusional state [Recovered/Resolved]
  - Aggression [Recovered/Resolved]
  - Amnesia [Recovered/Resolved]
  - Vomiting [Recovered/Resolved]
  - Apathy [Recovered/Resolved]
  - Disorientation [Recovered/Resolved]

NARRATIVE: CASE EVENT DATE: 20141028
